FAERS Safety Report 26052348 (Version 1)
Quarter: 2025Q4

REPORT INFORMATION
  Report Type: Spontaneous
  Country: EU (occurrence: EU)
  Receive Date: 20251117
  Receipt Date: 20251117
  Transmission Date: 20260118
  Serious: Yes (Life-Threatening, Hospitalization, Disabling)
  Sender: CHEPLAPHARM
  Company Number: None

PATIENT
  Age: 68 Year
  Sex: Female
  Weight: 56 kg

DRUGS (12)
  1. CAPECITABINE [Suspect]
     Active Substance: CAPECITABINE
     Indication: Breast cancer
     Dosage: 825 MG/M2 BID FROM DAYS 1-14?DAILY DOSE: 1650 MILLIGRAM/M?
     Route: 048
     Dates: start: 20110609, end: 20110701
  2. CAPECITABINE [Suspect]
     Active Substance: CAPECITABINE
     Indication: Breast cancer
     Dosage: DAILY DOSE: 1650 MILLIGRAM/M?
     Route: 048
     Dates: end: 20110704
  3. CAPECITABINE [Suspect]
     Active Substance: CAPECITABINE
     Indication: Breast cancer
     Dosage: LAST DOSE OF CAPECITABINE WAS GIVEN ON AN UNKNOWN DATE
     Route: 048
  4. DOCETAXEL [Suspect]
     Active Substance: DOCETAXEL
     Indication: Breast cancer
     Dosage: DAILY DOSE: 122.25 MILLIGRAM
     Route: 042
     Dates: start: 20110609, end: 20110609
  5. DOCETAXEL [Suspect]
     Active Substance: DOCETAXEL
     Indication: Breast cancer
     Dosage: DAILY DOSE: 122.25 MILLIGRAM
     Route: 042
     Dates: start: 20110630, end: 20110630
  6. BISOPROLOL [Concomitant]
     Active Substance: BISOPROLOL
     Indication: Hypertension
     Dosage: DAILY DOSE: 2.5 MILLIGRAM
     Route: 048
     Dates: start: 1991
  7. LEVOTHYROXINE [Concomitant]
     Active Substance: LEVOTHYROXINE
     Indication: Thyroidectomy
     Dosage: DAILY DOSE: 50 MICROGRAM
     Route: 048
     Dates: start: 2005, end: 20110728
  8. LEVOTHYROXINE [Concomitant]
     Active Substance: LEVOTHYROXINE
     Indication: Thyroidectomy
     Dosage: DAILY DOSE: 100 MICROGRAM
     Route: 048
     Dates: start: 20110728
  9. FLECAINIDE [Concomitant]
     Active Substance: FLECAINIDE
     Dates: start: 20110728
  10. PANTOPRAZOLE [Concomitant]
     Active Substance: PANTOPRAZOLE
     Dates: start: 20110728, end: 20111020
  11. TORSEMIDE [Concomitant]
     Active Substance: TORSEMIDE
     Dates: start: 20110728
  12. TORSEMIDE [Concomitant]
     Active Substance: TORSEMIDE
     Dosage: REDUCED TO 5 MG
     Dates: start: 20110930

REACTIONS (10)
  - Atrial fibrillation [Recovered/Resolved]
  - Febrile neutropenia [Recovered/Resolved]
  - Pancreatic atrophy [Recovered/Resolved]
  - Renal failure [Recovered/Resolved]
  - Large intestine infection [Recovered/Resolved]
  - Tachycardia paroxysmal [Recovered/Resolved]
  - Escherichia urinary tract infection [Recovered/Resolved]
  - Urinary tract infection bacterial [Recovered/Resolved]
  - Weight decreased [Recovered/Resolved]
  - Diarrhoea [Recovered/Resolved]

NARRATIVE: CASE EVENT DATE: 20110704
